FAERS Safety Report 11228644 (Version 2)
Quarter: 2015Q3

REPORT INFORMATION
  Report Type: Spontaneous
  Country: AU (occurrence: AU)
  Receive Date: 20150630
  Receipt Date: 20150714
  Transmission Date: 20151125
  Serious: Yes (Hospitalization, Disabling, Other)
  Sender: FDA-Public Use
  Company Number: AU-ABBVIE-15P-008-1415408-00

PATIENT
  Age: 17 Year
  Sex: Male

DRUGS (2)
  1. LOPINAVIR/RITONAVIR [Suspect]
     Active Substance: LOPINAVIR\RITONAVIR
     Indication: HIV INFECTION
     Route: 048
  2. TRUVADA [Suspect]
     Active Substance: EMTRICITABINE\TENOFOVIR DISOPROXIL FUMARATE
     Indication: HIV INFECTION
     Route: 065

REACTIONS (11)
  - Fanconi syndrome acquired [Recovering/Resolving]
  - Osteopenia [Recovering/Resolving]
  - Glycosuria [Recovering/Resolving]
  - Resorption bone increased [Recovering/Resolving]
  - Stress fracture [Recovered/Resolved]
  - Renal tubular disorder [Recovering/Resolving]
  - Osteomalacia [Recovering/Resolving]
  - Back pain [Recovered/Resolved]
  - Renal impairment [Recovering/Resolving]
  - Metabolic acidosis [Recovering/Resolving]
  - Proteinuria [Recovering/Resolving]
